FAERS Safety Report 12462430 (Version 1)
Quarter: 2016Q2

REPORT INFORMATION
  Report Type: Spontaneous
  Country: FI (occurrence: FI)
  Receive Date: 20160614
  Receipt Date: 20160614
  Transmission Date: 20160815
  Serious: Yes (Other)
  Sender: FDA-Public Use
  Company Number: FI-ROCHE-1773538

PATIENT
  Sex: Female

DRUGS (4)
  1. KADCYLA [Suspect]
     Active Substance: ADO-TRASTUZUMAB EMTANSINE
     Indication: HER-2 POSITIVE BREAST CANCER
     Route: 065
  2. 5-FLUOROURACIL [Concomitant]
     Active Substance: FLUOROURACIL
     Indication: HER-2 POSITIVE BREAST CANCER
  3. CYCLOPHOSPHAMIDE. [Concomitant]
     Active Substance: CYCLOPHOSPHAMIDE
     Indication: HER-2 POSITIVE BREAST CANCER
  4. EPIRUBICIN [Concomitant]
     Active Substance: EPIRUBICIN
     Indication: HER-2 POSITIVE BREAST CANCER

REACTIONS (1)
  - Liver function test increased [Unknown]

NARRATIVE: CASE EVENT DATE: 2016
